FAERS Safety Report 8429586-7 (Version None)
Quarter: 2012Q2

REPORT INFORMATION
  Report Type: 
  Country: None (occurrence: None)
  Receive Date: 20120612
  Receipt Date: 20120531
  Transmission Date: 20120825
  Serious: Yes (Hospitalization)
  Sender: FDA-Public Use
  Company Number: FR-VERTEX PHARMACEUTICALS INC.-AE-2011-000750

PATIENT
  Sex: Female
  Weight: 83 kg

DRUGS (10)
  1. VX-950 [Suspect]
     Indication: HEPATITIS C
     Route: 048
     Dates: start: 20110523
  2. URSODIOL [Concomitant]
     Indication: PROPHYLAXIS
     Route: 048
  3. COPEGUS [Concomitant]
     Indication: HEPATITIS C
     Route: 048
     Dates: start: 20110421
  4. COPEGUS [Concomitant]
     Route: 048
     Dates: start: 20110523
  5. PEGASYS [Concomitant]
     Indication: HEPATITIS C
     Route: 058
     Dates: start: 20110421
  6. IRBESARTAN AND HYDROCHLOROTHIAZIDE [Concomitant]
     Indication: HYPERTENSION
     Route: 048
  7. NEORECORMON [Concomitant]
     Indication: ANAEMIA
     Dates: start: 20110525
  8. VASTAREL [Concomitant]
     Indication: VERTIGO
     Route: 048
  9. NEORECORMON [Concomitant]
     Dates: start: 20110701
  10. LEVOTHYROXINE SODIUM [Concomitant]
     Indication: HYPOTHYROIDISM
     Route: 048

REACTIONS (3)
  - POST THROMBOTIC SYNDROME [None]
  - PANNICULITIS [None]
  - ANAEMIA [None]
